FAERS Safety Report 5036602-1 (Version None)
Quarter: 2006Q2

REPORT INFORMATION
  Report Type: 
  Country: None (occurrence: None)
  Receive Date: 20060531
  Receipt Date: 20060403
  Transmission Date: 20061013
  Serious: No
  Sender: FDA-Public Use
  Company Number: PHEH2006US04369

PATIENT
  Sex: Male

DRUGS (7)
  1. EXJADE [Suspect]
     Indication: BLOOD IRON INCREASED
     Dosage: 1500 MG, QD
     Dates: start: 20060309
  2. PREVACID [Concomitant]
  3. LANOXIN [Concomitant]
  4. CYANOCOBALAMIN [Concomitant]
  5. DAYPRO [Concomitant]
  6. PAXIL [Concomitant]
  7. STOOL SOFTENER (DOCUSATE SODIUM) [Concomitant]

REACTIONS (1)
  - DECREASED APPETITE [None]
